FAERS Safety Report 8304895-0 (Version None)
Quarter: 2012Q2

REPORT INFORMATION
  Report Type: 
  Country: None (occurrence: None)
  Receive Date: 20120423
  Receipt Date: 20120414
  Transmission Date: 20120825
  Serious: Yes (Other)
  Sender: FDA-Public Use
  Company Number: JP-ASTRAZENECA-2012SE25482

PATIENT
  Age: 81 Year
  Sex: Male

DRUGS (8)
  1. CANDESARTAN CILEXETIL [Suspect]
     Indication: HYPERTENSION
     Route: 048
     Dates: start: 20111029, end: 20120106
  2. FAMOSTAGINE [Concomitant]
     Route: 065
  3. ADALAT CC [Concomitant]
     Route: 048
  4. CANDESARTAN CILEXETIL [Suspect]
     Route: 048
     Dates: start: 20120107, end: 20120329
  5. VERAPAMIL HCL [Concomitant]
     Route: 065
  6. TENORMIN [Concomitant]
     Route: 048
  7. EPADEL [Concomitant]
     Route: 048
  8. MUCOSTA [Concomitant]
     Route: 065

REACTIONS (3)
  - WHITE BLOOD CELL COUNT INCREASED [None]
  - C-REACTIVE PROTEIN INCREASED [None]
  - RHABDOMYOLYSIS [None]
